FAERS Safety Report 19968034 (Version 2)
Quarter: 2021Q4

REPORT INFORMATION
  Report Type: Spontaneous
  Country: US (occurrence: US)
  Receive Date: 20211019
  Receipt Date: 20211030
  Transmission Date: 20220303
  Serious: Yes (Hospitalization, Other)
  Sender: FDA-Public Use
  Company Number: US-UNITED THERAPEUTICS-UNT-2021-019811

PATIENT
  Age: 63 Year
  Sex: Female

DRUGS (2)
  1. REMODULIN [Suspect]
     Active Substance: TREPROSTINIL
     Indication: Pulmonary arterial hypertension
     Dosage: UNK, CONTINUING
     Route: 058
     Dates: start: 20180709
  2. REMODULIN [Suspect]
     Active Substance: TREPROSTINIL
     Dosage: 0.049 ?G/KG, CONTINUING (0.024ML/HR)
     Route: 058

REACTIONS (6)
  - Anaemia [Recovered/Resolved]
  - Scleroderma [Not Recovered/Not Resolved]
  - Pneumonia [Recovered/Resolved]
  - Dyspnoea [Unknown]
  - Pulmonary hypertension [Unknown]
  - Respiratory syncytial virus test positive [Unknown]

NARRATIVE: CASE EVENT DATE: 20211001
